FAERS Safety Report 23039174 (Version 1)
Quarter: 2023Q4

REPORT INFORMATION
  Report Type: Report from Study
  Country: NO (occurrence: NO)
  Receive Date: 20231006
  Receipt Date: 20231006
  Transmission Date: 20240110
  Serious: Yes (Hospitalization)
  Sender: FDA-Public Use
  Company Number: NO-002147023-NVSC2023NO099740

PATIENT
  Age: 58 Year
  Sex: Female

DRUGS (11)
  1. MEKINIST [Suspect]
     Active Substance: TRAMETINIB DIMETHYL SULFOXIDE
     Indication: Neoplasm malignant
     Dosage: 2 MG
     Route: 048
     Dates: start: 20230213, end: 20230313
  2. MEKINIST [Suspect]
     Active Substance: TRAMETINIB DIMETHYL SULFOXIDE
     Dosage: 1.5 MG
     Route: 048
     Dates: start: 20230314, end: 20230404
  3. FLUTICASONE FUROATE\VILANTEROL TRIFENATATE [Concomitant]
     Active Substance: FLUTICASONE FUROATE\VILANTEROL TRIFENATATE
     Indication: Dyspnoea
     Dosage: 184/22 UG
     Route: 065
     Dates: start: 201906
  4. VIMOVO [Concomitant]
     Active Substance: ESOMEPRAZOLE MAGNESIUM\NAPROXEN
     Indication: Pain
     Dosage: 500/20 MG
     Route: 065
     Dates: start: 202208
  5. CYKLOKAPRON [Concomitant]
     Active Substance: TRANEXAMIC ACID
     Indication: Haemoptysis
     Dosage: 500 MG
     Route: 065
     Dates: start: 20230131
  6. LYMECYCLINE [Concomitant]
     Active Substance: LYMECYCLINE
     Indication: Rash
     Dosage: 300 MG
     Route: 065
     Dates: start: 20230227
  7. DEXAMETHASONE [Concomitant]
     Active Substance: DEXAMETHASONE
     Indication: Rash
     Dosage: 4 MG
     Route: 065
     Dates: start: 20230302, end: 20230306
  8. DEXAMETHASONE [Concomitant]
     Active Substance: DEXAMETHASONE
     Indication: Dyspnoea
     Dosage: 4 MG
     Route: 065
     Dates: start: 20230307, end: 20230313
  9. DEXAMETHASONE [Concomitant]
     Active Substance: DEXAMETHASONE
     Dosage: 4 MG
     Route: 065
     Dates: start: 20230314, end: 20230328
  10. DEXAMETHASONE [Concomitant]
     Active Substance: DEXAMETHASONE
     Dosage: 4 MG
     Route: 065
     Dates: start: 20230329
  11. PROTOPIC [Concomitant]
     Active Substance: TACROLIMUS
     Indication: Rash
     Dosage: UNK
     Route: 065
     Dates: start: 20230307

REACTIONS (2)
  - Pneumonia [Recovered/Resolved]
  - Pulmonary embolism [Recovered/Resolved]

NARRATIVE: CASE EVENT DATE: 20230403
